FAERS Safety Report 4557949-9 (Version None)
Quarter: 2005Q1

REPORT INFORMATION
  Report Type: 
  Country: None (occurrence: None)
  Receive Date: 20050121
  Receipt Date: 20040225
  Transmission Date: 20050727
  Serious: No
  Sender: FDA-Public Use
  Company Number: US-BRISTOL-MYERS SQUIBB COMPANY-12517553

PATIENT
  Age: 52 Year
  Sex: Female
  Weight: 53 kg

DRUGS (7)
  1. SERZONE [Suspect]
     Indication: DEPRESSION
     Route: 048
  2. EXCEDRIN (MIGRAINE) [Concomitant]
     Indication: MIGRAINE
  3. VICODIN [Concomitant]
     Indication: PAIN
     Dosage: AS NECESSARY
  4. ZOMIG [Concomitant]
  5. IBUPROFEN [Concomitant]
  6. HYDROCODONE + ACETAMINOPHEN [Concomitant]
  7. OXYCODONE HCL + ACETAMINOPHEN [Concomitant]

REACTIONS (4)
  - ABDOMINAL PAIN [None]
  - ALANINE AMINOTRANSFERASE INCREASED [None]
  - ASPARTATE AMINOTRANSFERASE INCREASED [None]
  - BLOOD ALKALINE PHOSPHATASE INCREASED [None]
